FAERS Safety Report 10101161 (Version 1)
Quarter: 2014Q2

REPORT INFORMATION
  Report Type: Spontaneous
  Country: CH (occurrence: CH)
  Receive Date: 20140424
  Receipt Date: 20140424
  Transmission Date: 20141212
  Serious: Yes (Other)
  Sender: FDA-Public Use
  Company Number: 2014SP002279

PATIENT
  Age: 24 Year
  Sex: Female

DRUGS (27)
  1. SMOFKABIVEN [Concomitant]
  2. KALIUMCHLORIDE [Concomitant]
  3. DOXORUBICIN [Suspect]
     Indication: EWING^S SARCOMA
     Dates: start: 20130920
  4. DOXORUBICIN [Suspect]
     Indication: EWING^S SARCOMA
     Dates: start: 20131011
  5. DOXORUBICIN [Suspect]
     Indication: EWING^S SARCOMA
     Dates: start: 20131105
  6. DOXORUBICIN [Suspect]
     Indication: EWING^S SARCOMA
     Dates: start: 20131129
  7. DOXORUBICIN [Suspect]
     Indication: EWING^S SARCOMA
     Dates: start: 20131227
  8. ETOPOSIDE [Suspect]
     Indication: EWING^S SARCOMA
     Dates: start: 20130920
  9. ETOPOSIDE [Suspect]
     Indication: EWING^S SARCOMA
     Dates: start: 20131011
  10. ETOPOSIDE [Suspect]
     Indication: EWING^S SARCOMA
     Dates: start: 20131105
  11. ETOPOSIDE [Suspect]
     Indication: EWING^S SARCOMA
     Dates: start: 20131129
  12. ETOPOSIDE [Suspect]
     Indication: EWING^S SARCOMA
     Dates: start: 20131227
  13. IFOSFAMIDE [Suspect]
     Indication: EWING^S SARCOMA
     Dates: start: 20130920
  14. IFOSFAMIDE [Suspect]
     Indication: EWING^S SARCOMA
     Dates: start: 20131011
  15. IFOSFAMIDE [Suspect]
     Indication: EWING^S SARCOMA
     Dates: start: 20131105
  16. IFOSFAMIDE [Suspect]
     Indication: EWING^S SARCOMA
     Dates: start: 20131129
  17. IFOSFAMIDE [Suspect]
     Indication: EWING^S SARCOMA
     Dates: start: 20131227
  18. VINCRISTINE [Suspect]
     Indication: EWING^S SARCOMA
     Dates: start: 20130920
  19. VINCRISTINE [Suspect]
     Indication: EWING^S SARCOMA
     Dates: start: 20131011
  20. VINCRISTINE [Suspect]
     Indication: EWING^S SARCOMA
     Dates: start: 20131105
  21. VINCRISTINE [Suspect]
     Indication: EWING^S SARCOMA
     Dates: start: 20131129
  22. VINCRISTINE [Suspect]
     Indication: EWING^S SARCOMA
     Dates: start: 20131227
  23. DEXAMETHASONE [Concomitant]
     Dates: end: 20140220
  24. BACTRIM [Concomitant]
  25. MAGNESIUM [Concomitant]
  26. ADDAMEL [Concomitant]
  27. VITAMINS NOS [Concomitant]

REACTIONS (5)
  - Neutropenic sepsis [Unknown]
  - Escherichia bacteraemia [Unknown]
  - Enterobacter infection [Unknown]
  - Klebsiella infection [Unknown]
  - Pneumonia fungal [Unknown]
